FAERS Safety Report 25824921 (Version 1)
Quarter: 2025Q3

REPORT INFORMATION
  Report Type: Spontaneous
  Country: US (occurrence: US)
  Receive Date: 20250919
  Receipt Date: 20250919
  Transmission Date: 20251020
  Serious: No
  Sender: PFIZER
  Company Number: US-PFIZER INC-PV202400170729

PATIENT
  Age: 49 Year
  Sex: Female

DRUGS (1)
  1. TUKYSA [Suspect]
     Active Substance: TUCATINIB
     Dosage: TUKYSA 150MG TWO TABLETS TWICE A DAY/ 150 MG TAKE TWO TABLETS (300 MG TOTAL) BY MOUTH TWICE DAILY
     Route: 048

REACTIONS (1)
  - Product prescribing error [Unknown]
